FAERS Safety Report 21662983 (Version 1)
Quarter: 2022Q4

REPORT INFORMATION
  Report Type: Spontaneous
  Country: US (occurrence: US)
  Receive Date: 20221130
  Receipt Date: 20221130
  Transmission Date: 20230113
  Serious: No
  Sender: FDA-Public Use
  Company Number: US-SANOFI-01383833

PATIENT
  Age: 58 Year
  Sex: Male

DRUGS (3)
  1. DUPIXENT [Suspect]
     Active Substance: DUPILUMAB
     Indication: Dermatitis
     Dosage: 600 MG, 1X
  2. DUPIXENT [Suspect]
     Active Substance: DUPILUMAB
     Indication: Psoriasis
     Dosage: UNK UNK, QOW
  3. SODIUM [Concomitant]
     Active Substance: SODIUM
     Dosage: UNK

REACTIONS (2)
  - Psoriasis [Unknown]
  - Product use in unapproved indication [Unknown]
